FAERS Safety Report 5894254-2 (Version None)
Quarter: 2008Q3

REPORT INFORMATION
  Report Type: 
  Country: None (occurrence: None)
  Receive Date: 20080923
  Receipt Date: 20080314
  Transmission Date: 20090109
  Serious: No
  Sender: FDA-Public Use
  Company Number: US-ASTRAZENECA-2008UW05292

PATIENT
  Age: 56 Year
  Sex: Female
  Weight: 45.4 kg

DRUGS (1)
  1. SEROQUEL [Suspect]
     Indication: DRUG WITHDRAWAL SYNDROME
     Dosage: 300 MG AM 400 MG HS
     Route: 048
     Dates: start: 20010101

REACTIONS (2)
  - FEELING ABNORMAL [None]
  - SLEEP DISORDER [None]
